FAERS Safety Report 23242731 (Version 1)
Quarter: 2023Q4

REPORT INFORMATION
  Report Type: Spontaneous
  Country: US (occurrence: US)
  Receive Date: 20231129
  Receipt Date: 20231129
  Transmission Date: 20240109
  Serious: No
  Sender: FDA-Public Use
  Company Number: US-VIIV HEALTHCARE LIMITED-US2023AMR162807

PATIENT
  Age: 52 Year
  Sex: Male

DRUGS (4)
  1. RILPIVIRINE [Suspect]
     Active Substance: RILPIVIRINE
     Indication: HIV infection
     Dosage: 1500 MG, MO
     Route: 030
     Dates: start: 20230825
  2. RILPIVIRINE [Suspect]
     Active Substance: RILPIVIRINE
     Dosage: 1500 MG, Q2M, 1500MG EVERY 2 MONTHS
     Route: 030
     Dates: start: 20230922
  3. CABOTEGRAVIR [Suspect]
     Active Substance: CABOTEGRAVIR
     Indication: HIV infection
     Dosage: 1500 MG, MO
     Route: 030
     Dates: start: 20230825
  4. CABOTEGRAVIR [Suspect]
     Active Substance: CABOTEGRAVIR
     Dosage: 1500 MG, Q2M, 1500MG EVERY 2 MONTHS
     Route: 030
     Dates: start: 20230922

REACTIONS (1)
  - Fatigue [Recovered/Resolved]

NARRATIVE: CASE EVENT DATE: 20230825
